FAERS Safety Report 26147340 (Version 1)
Quarter: 2025Q4

REPORT INFORMATION
  Report Type: Spontaneous
  Country: EU (occurrence: EU)
  Receive Date: 20251211
  Receipt Date: 20251211
  Transmission Date: 20260117
  Serious: Yes (Hospitalization)
  Sender: MERCK SHARP & DOHME LLC
  Company Number: None

PATIENT
  Age: 78 Year
  Sex: Female
  Weight: 61 kg

DRUGS (10)
  1. KEYTRUDA [Suspect]
     Active Substance: PEMBROLIZUMAB
     Indication: Adenocarcinoma gastric
     Dosage: STRENGTH: 50 MG  ?DOSING: 200 MG / 21 DAY, 3 APPLICATIONS
     Route: 042
     Dates: start: 20250820, end: 20251001
  2. ARCOXIA [Concomitant]
     Active Substance: ETORICOXIB
     Dosage: TIME INTERVAL: AS NECESSARY: 1 TABLET IF NECESSARY
  3. ANALGIN 500 MG [Concomitant]
     Dosage: 3X1
  4. Helex 0.25 MG [Concomitant]
     Dosage: TIME INTERVAL: AS NECESSARY: IF NECESSARY 0.25 MG UP TO 3X
  5. Flutiform 250 MICROGRAM / 10 MICROGRAM [Concomitant]
     Dosage: 1 DOSE 2X A DAY
  6. Tolura 80 MG [Concomitant]
     Dosage: IN THE MORNING
  7. Rawel SR 1.5 MG [Concomitant]
     Dosage: IN THE MORNING
  8. Nolpaza 20 MG [Concomitant]
     Dosage: 2X1
  9. CAPECITABINE [Suspect]
     Active Substance: CAPECITABINE
     Indication: Adenocarcinoma gastric
     Dosage: STRENGTH: 150 MG  ?DOSING: 1000 MG 1-14 DAYS
     Route: 048
     Dates: start: 20250820, end: 20251001
  10. OXALIPLATIN [Suspect]
     Active Substance: OXALIPLATIN
     Indication: Adenocarcinoma gastric
     Dosage: STRENGTH: 5 MG/ML DOSING: 129.4 MG / 21 DAY , 127.92 MG (40% DOSE)
     Route: 042
     Dates: start: 20250820, end: 20251001

REACTIONS (2)
  - Paraesthesia [Recovered/Resolved]
  - Encephalitis [Recovered/Resolved]

NARRATIVE: CASE EVENT DATE: 20251022
